FAERS Safety Report 23354567 (Version 1)
Quarter: 2024Q1

REPORT INFORMATION
  Report Type: Spontaneous
  Country: CN (occurrence: CN)
  Receive Date: 20240101
  Receipt Date: 20240101
  Transmission Date: 20240410
  Serious: Yes (Hospitalization)
  Sender: FDA-Public Use
  Company Number: CN-BEIGENE-BGN-2023-015418

PATIENT
  Age: 71 Year
  Sex: Male
  Weight: 71 kg

DRUGS (4)
  1. TISLELIZUMAB [Suspect]
     Active Substance: TISLELIZUMAB
     Indication: Bone cancer
     Dosage: 200 MG ROUTE OF ADMIN (FREE TEXT): INTRAVENOUS DRIP
     Route: 065
     Dates: start: 20231127
  2. CISPLATIN [Suspect]
     Active Substance: CISPLATIN
     Indication: Bone cancer
     Dosage: 40 MG
     Route: 041
     Dates: start: 20231127
  3. CISPLATIN [Suspect]
     Active Substance: CISPLATIN
     Dosage: 30 MG
     Route: 041
     Dates: start: 20231127
  4. PEMETREXED DISODIUM [Suspect]
     Active Substance: PEMETREXED DISODIUM
     Indication: Bone cancer
     Dosage: 750 MG (POWDER AND SOLUTION FOR SOLUTION FOR INJECTION) ROUTE OF ADMIN (FREE TEXT): INTRAVENOUS DRIP
     Route: 065
     Dates: start: 20231127

REACTIONS (1)
  - Myelosuppression [Recovered/Resolved]

NARRATIVE: CASE EVENT DATE: 20231203
